FAERS Safety Report 21314501 (Version 4)
Quarter: 2022Q4

REPORT INFORMATION
  Report Type: Spontaneous
  Country: US (occurrence: US)
  Receive Date: 20220909
  Receipt Date: 20221230
  Transmission Date: 20230113
  Serious: Yes (Other)
  Sender: FDA-Public Use
  Company Number: US-PFIZER INC-PV202200059555

PATIENT
  Age: 59 Year
  Sex: Female

DRUGS (1)
  1. XELJANZ XR [Suspect]
     Active Substance: TOFACITINIB CITRATE
     Dosage: 11 MG, DAILY
     Route: 048

REACTIONS (7)
  - Rheumatoid arthritis [Unknown]
  - Visual impairment [Unknown]
  - Blood cholesterol abnormal [Unknown]
  - COVID-19 [Recovered/Resolved]
  - Renal disorder [Recovered/Resolved]
  - Rotator cuff syndrome [Unknown]
  - Synovitis [Unknown]

NARRATIVE: CASE EVENT DATE: 20210101
